FAERS Safety Report 8792959 (Version 1)
Quarter: 2012Q4

REPORT INFORMATION
  Report Type: Report from Study
  Country: US (occurrence: US)
  Receive Date: 20120918
  Receipt Date: 20120918
  Transmission Date: 20130627
  Serious: Yes (Other)
  Sender: FDA-Public Use
  Company Number: US-ROCHE-1121141

PATIENT

DRUGS (5)
  1. PEGASYS [Suspect]
     Indication: HEPATITIS C
     Route: 065
  2. COPEGUS [Suspect]
     Indication: HEPATITIS C
     Route: 065
  3. UNSPECIFIED INGREDIENT [Suspect]
     Indication: HEPATITIS C
  4. DACLATASVIR [Suspect]
     Indication: HEPATITIS C
  5. UNSPECIFIED INGREDIENT [Suspect]
     Indication: HEPATITIS C

REACTIONS (1)
  - Syncope [Unknown]
